FAERS Safety Report 6065313-9 (Version None)
Quarter: 2009Q1

REPORT INFORMATION
  Report Type: 
  Country: None (occurrence: None)
  Receive Date: 20090130
  Receipt Date: 20090122
  Transmission Date: 20090719
  Serious: Yes (Other)
  Sender: FDA-Public Use
  Company Number: TUK2009A00020

PATIENT
  Sex: Female

DRUGS (2)
  1. ACTOS [Suspect]
  2. METFORMIN HCL [Concomitant]

REACTIONS (2)
  - INSOMNIA [None]
  - VISUAL IMPAIRMENT [None]
